FAERS Safety Report 9358029 (Version 5)
Quarter: 2018Q1

REPORT INFORMATION
  Report Type: Report from Study
  Country: TR (occurrence: TR)
  Receive Date: 20130620
  Receipt Date: 20180111
  Transmission Date: 20180509
  Serious: Yes (Death)
  Sender: FDA-Public Use
  Company Number: TR-ASTELLAS-2013US006368

PATIENT
  Age: 61 Year
  Sex: Male
  Weight: 56 kg

DRUGS (2)
  1. ERLOTINIB [Suspect]
     Active Substance: ERLOTINIB
     Indication: NON-SMALL CELL LUNG CANCER
     Dosage: 150 MG, ONCE DAILY (LAST DOSE PRIOR TO SAE: 08 APRIL 2011, DOSE BLINDED, FREQUENCY: ONCE DAILY)
     Route: 048
     Dates: start: 20110120
  2. PLACEBO [Suspect]
     Active Substance: UNSPECIFIED INGREDIENT
     Indication: NON-SMALL CELL LUNG CANCER
     Dosage: UNK UNK, ONCE DAILY (LAST DOSE PRIOR TO SAE: 08 APRIL 2011, DOSE BLINDED, FREQUENCY: ONCE DAIL)
     Route: 048
     Dates: start: 20110120

REACTIONS (1)
  - Cardiac failure [Fatal]

NARRATIVE: CASE EVENT DATE: 20110409
